FAERS Safety Report 5673181-X (Version None)
Quarter: 2008Q1

REPORT INFORMATION
  Report Type: 
  Country: None (occurrence: None)
  Receive Date: 20080319
  Receipt Date: 20080313
  Transmission Date: 20080703
  Serious: Yes (Other)
  Sender: FDA-Public Use
  Company Number: GB-ROCHE-553142

PATIENT
  Age: 64 Year
  Sex: Female

DRUGS (1)
  1. ORLISTAT [Suspect]
     Indication: OBESITY
     Route: 048

REACTIONS (1)
  - BREAST CANCER [None]
